FAERS Safety Report 7233062-7 (Version None)
Quarter: 2011Q1

REPORT INFORMATION
  Report Type: 
  Country: None (occurrence: None)
  Receive Date: 20110106
  Receipt Date: 20101215
  Transmission Date: 20110831
  Serious: No
  Sender: FDA-Public Use
  Company Number: THQ2010A04086

PATIENT
  Age: 70 Year
  Sex: Female

DRUGS (1)
  1. PREVACID [Suspect]
     Dosage: PER ORAL
     Route: 048
     Dates: start: 20080101, end: 20100101

REACTIONS (2)
  - HYPOAESTHESIA [None]
  - VISION BLURRED [None]
